FAERS Safety Report 8242077-1 (Version None)
Quarter: 2012Q1

REPORT INFORMATION
  Report Type: 
  Country: None (occurrence: None)
  Receive Date: 20120329
  Receipt Date: 20091016
  Transmission Date: 20120608
  Serious: No
  Sender: FDA-Public Use
  Company Number: 2009BI033734

PATIENT
  Age: 58 Year
  Sex: Female

DRUGS (1)
  1. TYSABRI [Suspect]
     Indication: MULTIPLE SCLEROSIS
     Route: 042
     Dates: start: 20071121

REACTIONS (14)
  - FALL [None]
  - MUSCULAR WEAKNESS [None]
  - DEMENTIA [None]
  - DYSPEPSIA [None]
  - VOMITING [None]
  - URINARY TRACT INFECTION [None]
  - CYSTITIS [None]
  - VITAMIN D DECREASED [None]
  - FATIGUE [None]
  - MEMORY IMPAIRMENT [None]
  - CONTUSION [None]
  - HIATUS HERNIA [None]
  - BARRETT'S OESOPHAGUS [None]
  - NAUSEA [None]
